FAERS Safety Report 15117268 (Version 1)
Quarter: 2018Q3

REPORT INFORMATION
  Report Type: Spontaneous
  Country: US (occurrence: US)
  Receive Date: 20180706
  Receipt Date: 20180706
  Transmission Date: 20181010
  Serious: No
  Sender: FDA-Public Use
  Company Number: US-TEVA-2018-US-922856

PATIENT
  Sex: Female

DRUGS (2)
  1. LIDOCAINE. [Suspect]
     Active Substance: LIDOCAINE
     Indication: BACK PAIN
  2. LIDOCAINE. [Suspect]
     Active Substance: LIDOCAINE
     Indication: ARTHRALGIA
     Route: 062

REACTIONS (2)
  - Product quality issue [Unknown]
  - Drug ineffective [Unknown]
